FAERS Safety Report 23170446 (Version 1)
Quarter: 2023Q4

REPORT INFORMATION
  Report Type: Spontaneous
  Country: US (occurrence: US)
  Receive Date: 20231110
  Receipt Date: 20231110
  Transmission Date: 20240110
  Serious: Yes (Death, Life-Threatening, Other)
  Sender: FDA-Public Use
  Company Number: US-ALXN-202310USA000289US

PATIENT
  Age: 61 Year
  Sex: Female

DRUGS (1)
  1. SOLIRIS [Suspect]
     Active Substance: ECULIZUMAB
     Indication: Neuromyelitis optica spectrum disorder
     Dosage: UNK, Q2W
     Route: 042
     Dates: start: 202010, end: 20231024

REACTIONS (4)
  - Cardiac arrest [Unknown]
  - Neuromyelitis optica spectrum disorder [Fatal]
  - Brain oedema [Fatal]
  - Sepsis [Unknown]

NARRATIVE: CASE EVENT DATE: 20230901
